FAERS Safety Report 4964512-4 (Version None)
Quarter: 2006Q2

REPORT INFORMATION
  Report Type: 
  Country: None (occurrence: None)
  Receive Date: 20060406
  Receipt Date: 20051128
  Transmission Date: 20061013
  Serious: Yes (Hospitalization)
  Sender: FDA-Public Use
  Company Number: US-GLAXOSMITHKLINE-A0583675A

PATIENT
  Age: 19 Year
  Sex: Female

DRUGS (8)
  1. ESKALITH [Suspect]
     Indication: BIPOLAR I DISORDER
     Dosage: 300MG PER DAY
     Route: 048
  2. LITHOBID [Suspect]
     Indication: BIPOLAR I DISORDER
  3. LITHIUM [Suspect]
     Indication: BIPOLAR I DISORDER
  4. DEPAKOTE [Suspect]
     Indication: BIPOLAR I DISORDER
  5. EFFEXOR [Concomitant]
  6. VITAMIN B COMPLEX CAP [Concomitant]
  7. YASMIN [Concomitant]
  8. ACNE MEDICATION [Concomitant]
     Route: 061

REACTIONS (6)
  - ACNE [None]
  - ADVERSE EVENT [None]
  - ANXIETY [None]
  - DRUG INEFFECTIVE [None]
  - PANIC ATTACK [None]
  - SUICIDAL IDEATION [None]
